FAERS Safety Report 6911497-7 (Version None)
Quarter: 2010Q3

REPORT INFORMATION
  Report Type: 
  Country: None (occurrence: None)
  Receive Date: 20100806
  Receipt Date: 20100727
  Transmission Date: 20110219
  Serious: Yes (Other)
  Sender: FDA-Public Use
  Company Number: US-ELI_LILLY_AND_COMPANY-US201007006948

PATIENT
  Sex: Female

DRUGS (3)
  1. ALIMTA [Suspect]
     Indication: NON-SMALL CELL LUNG CANCER STAGE 0
  2. CARBOPLATIN [Concomitant]
     Indication: LUNG NEOPLASM MALIGNANT
  3. AVASTIN [Concomitant]
     Indication: LUNG NEOPLASM MALIGNANT

REACTIONS (2)
  - NON-SMALL CELL LUNG CANCER RECURRENT [None]
  - RENAL FAILURE [None]
